FAERS Safety Report 8243585-X (Version None)
Quarter: 2012Q1

REPORT INFORMATION
  Report Type: 
  Country: None (occurrence: None)
  Receive Date: 20120329
  Receipt Date: 20120322
  Transmission Date: 20120608
  Serious: Yes (Hospitalization, Other)
  Sender: FDA-Public Use
  Company Number: CZ-UCBSA-024025

PATIENT
  Age: 61 Year
  Sex: Male
  Weight: 98 kg

DRUGS (13)
  1. GODASAL [Concomitant]
     Indication: MYOCARDIAL ISCHAEMIA
  2. HIPRES [Concomitant]
     Indication: HYPERTENSION
  3. PROSULPIN [Concomitant]
     Indication: ANXIETY
  4. NEUPRO [Suspect]
     Route: 062
     Dates: start: 20101028, end: 20101104
  5. EGILOK [Concomitant]
     Indication: HYPERTENSION
  6. GANATON [Concomitant]
     Indication: DYSPEPSIA
  7. CILAZAPRIL [Concomitant]
     Indication: HYPERTENSION
  8. DETRALEX [Concomitant]
     Indication: HAEMORRHOID OPERATION
  9. APO-PANTO [Concomitant]
     Indication: DYSPEPSIA
     Dates: start: 20100901
  10. NEUPRO [Suspect]
     Indication: PARKINSON'S DISEASE
     Route: 062
     Dates: start: 20101021, end: 20101027
  11. HYDROCHLOROTHIAZIDE [Concomitant]
     Indication: HYPERTENSION
  12. NEUPRO [Suspect]
     Route: 062
     Dates: start: 20101105, end: 20110106
  13. ATORVASTATIN [Concomitant]
     Indication: HYPERLIPIDAEMIA

REACTIONS (2)
  - CHOLANGITIS [None]
  - PANCREATITIS NECROTISING [None]
